FAERS Safety Report 5907573-8 (Version None)
Quarter: 2008Q4

REPORT INFORMATION
  Report Type: 
  Country: None (occurrence: None)
  Receive Date: 20081003
  Receipt Date: 20080923
  Transmission Date: 20090506
  Serious: Yes (Other)
  Sender: FDA-Public Use
  Company Number: US-BAXTER-2008BH009142

PATIENT
  Age: 41 Year
  Weight: 54 kg

DRUGS (1)
  1. POTASSIUM CHLORIDE/DEXTROSE/SODIUM CHLORIDE [Suspect]
     Indication: HYPOKALAEMIA
     Dosage: DOSE UNIT:UNKNOWN
     Route: 042
     Dates: start: 20080525, end: 20080525

REACTIONS (1)
  - ANAPHYLACTIC REACTION [None]
